FAERS Safety Report 5141721-5 (Version None)
Quarter: 2006Q4

REPORT INFORMATION
  Report Type: 
  Country: None (occurrence: None)
  Receive Date: 20061026
  Receipt Date: 20061017
  Transmission Date: 20070319
  Serious: Yes (Hospitalization)
  Sender: FDA-Public Use
  Company Number: 2006BI011802

PATIENT
  Age: 56 Year
  Sex: Female

DRUGS (10)
  1. AVONEX [Suspect]
     Indication: MULTIPLE SCLEROSIS
     Dosage: 30 UG QW IM
     Route: 030
     Dates: start: 20010601
  2. AVONEX [Suspect]
     Indication: MULTIPLE SCLEROSIS
     Dosage: 30 UG QW IM
     Route: 030
  3. CAPTOPRIL [Concomitant]
  4. HYDROCHLOROTHIAZIDE [Concomitant]
  5. SYNAREL [Concomitant]
  6. NORVASK [Concomitant]
  7. FLONASE [Concomitant]
  8. ATIVAN [Concomitant]
  9. ALBUTEROL [Concomitant]
  10. ZYRTEC [Concomitant]

REACTIONS (6)
  - ASTHMA [None]
  - BRONCHIAL HYPERREACTIVITY [None]
  - CHRONIC OBSTRUCTIVE PULMONARY DISEASE [None]
  - CONDITION AGGRAVATED [None]
  - DRUG LEVEL CHANGED [None]
  - EXPOSURE TO ALLERGEN [None]
